FAERS Safety Report 5073027-7 (Version None)
Quarter: 2006Q3

REPORT INFORMATION
  Report Type: 
  Country: None (occurrence: None)
  Receive Date: 20060802
  Receipt Date: 20060719
  Transmission Date: 20061208
  Serious: Yes (Life-Threatening, Hospitalization)
  Sender: FDA-Public Use
  Company Number: EM2006-0364

PATIENT
  Age: 44 Year
  Sex: Male
  Weight: 86 kg

DRUGS (8)
  1. MACROLIN [Suspect]
     Indication: HIV INFECTION
     Dosage: SEE IMAGE
     Route: 058
     Dates: start: 20060403, end: 20060407
  2. MACROLIN [Suspect]
     Indication: HIV INFECTION
     Dosage: SEE IMAGE
     Route: 058
     Dates: start: 20060515, end: 20060519
  3. MACROLIN [Suspect]
     Indication: HIV INFECTION
     Dosage: SEE IMAGE
     Route: 058
     Dates: start: 20060626, end: 20060629
  4. KALETRA (POTASSIUM CHLORIDE) [Concomitant]
  5. COMBIVIR [Concomitant]
  6. VIREAD [Concomitant]
  7. ACETAMINOPHEN [Concomitant]
  8. MACROLIN [Suspect]

REACTIONS (7)
  - ALANINE AMINOTRANSFERASE INCREASED [None]
  - ANAPHYLACTIC REACTION [None]
  - BLOOD ALKALINE PHOSPHATASE INCREASED [None]
  - HEART RATE INCREASED [None]
  - MOOD ALTERED [None]
  - PYREXIA [None]
  - THROMBOCYTOPENIA [None]
